FAERS Safety Report 7156516-0 (Version None)
Quarter: 2010Q4

REPORT INFORMATION
  Report Type: 
  Country: None (occurrence: None)
  Receive Date: 20101214
  Receipt Date: 20091116
  Transmission Date: 20110411
  Serious: No
  Sender: FDA-Public Use
  Company Number: US-ASTRAZENECA-2009SE26680

PATIENT
  Age: 79 Year
  Sex: Female
  Weight: 69.4 kg

DRUGS (8)
  1. CRESTOR [Suspect]
     Route: 048
     Dates: start: 20091101
  2. ZOCOR [Concomitant]
     Indication: AMNESIA
  3. LISINOPRIL [Concomitant]
  4. LASIX [Concomitant]
  5. PREVACID [Concomitant]
  6. ZYRTEC [Concomitant]
  7. DILTIAZEM CD [Concomitant]
  8. ASPIRIN [Concomitant]

REACTIONS (2)
  - AMNESIA [None]
  - ERYTHEMA [None]
